FAERS Safety Report 10189584 (Version 4)
Quarter: 2017Q3

REPORT INFORMATION
  Report Type: Spontaneous
  Country: US (occurrence: US)
  Receive Date: 20140522
  Receipt Date: 20170817
  Transmission Date: 20171127
  Serious: Yes (Hospitalization, Other)
  Sender: FDA-Public Use
  Company Number: US-GLAXOSMITHKLINE-A1073482A

PATIENT
  Age: 63 Year
  Sex: Female

DRUGS (17)
  1. COATED ASPIRIN [Concomitant]
     Active Substance: ASPIRIN
     Route: 065
  2. FOLIC ACID. [Concomitant]
     Active Substance: FOLIC ACID
     Route: 065
  3. LASIX [Concomitant]
     Active Substance: FUROSEMIDE
     Route: 065
  4. NORCO [Concomitant]
     Active Substance: ACETAMINOPHEN\HYDROCODONE BITARTRATE
  5. TIKOSYN [Concomitant]
     Active Substance: DOFETILIDE
     Route: 065
  6. SINGULAIR [Concomitant]
     Active Substance: MONTELUKAST SODIUM
     Route: 065
  7. TOPROL XL [Concomitant]
     Active Substance: METOPROLOL SUCCINATE
     Route: 065
  8. DIOVAN [Concomitant]
     Active Substance: VALSARTAN
     Route: 065
  9. OXYGEN. [Concomitant]
     Active Substance: OXYGEN
  10. ADVAIR DISKUS [Suspect]
     Active Substance: FLUTICASONE PROPIONATE\SALMETEROL XINAFOATE
     Indication: CHRONIC OBSTRUCTIVE PULMONARY DISEASE
     Dosage: 1 PUFF(S), BID
     Route: 055
     Dates: start: 2001
  11. DEXILANT [Concomitant]
     Active Substance: DEXLANSOPRAZOLE
     Route: 065
  12. ADVAIR DISKUS [Suspect]
     Active Substance: FLUTICASONE PROPIONATE\SALMETEROL XINAFOATE
     Indication: ASTHMA
     Dosage: UNK
     Dates: start: 2001
  13. GENTAMYCIN [Concomitant]
     Active Substance: GENTAMICIN
  14. COUMADIN [Suspect]
     Active Substance: WARFARIN SODIUM
     Indication: PRODUCT USED FOR UNKNOWN INDICATION
     Dosage: 5MG, 6 DAYS A WEEK AND 7.5 MG ONCE WEEKLY
     Route: 065
  15. COUMADIN [Suspect]
     Active Substance: WARFARIN SODIUM
  16. GABAPENTIN. [Concomitant]
     Active Substance: GABAPENTIN
  17. NITROGLYCERIN. [Concomitant]
     Active Substance: NITROGLYCERIN

REACTIONS (24)
  - Hospitalisation [Unknown]
  - Peripheral swelling [Not Recovered/Not Resolved]
  - Insomnia [Recovered/Resolved]
  - Thrombosis [Unknown]
  - Neoplasm skin [Unknown]
  - Drug dose omission [Unknown]
  - Chest pain [Recovered/Resolved]
  - Pyoderma gangrenosum [Not Recovered/Not Resolved]
  - Splenic infarction [Recovered/Resolved]
  - Adverse drug reaction [Unknown]
  - Dyspnoea [Unknown]
  - Bronchitis [Unknown]
  - Renal infarct [Recovered/Resolved]
  - Visual impairment [Unknown]
  - Atrial fibrillation [Unknown]
  - Pain [Not Recovered/Not Resolved]
  - Cardiac failure congestive [Not Recovered/Not Resolved]
  - Eyelid oedema [Unknown]
  - Acrochordon [Unknown]
  - Angiopathy [Not Recovered/Not Resolved]
  - Skin discolouration [Unknown]
  - Skin ulcer [Not Recovered/Not Resolved]
  - Atrial flutter [Not Recovered/Not Resolved]
  - Erythema [Not Recovered/Not Resolved]

NARRATIVE: CASE EVENT DATE: 201103
